FAERS Safety Report 13579734 (Version 1)
Quarter: 2017Q2

REPORT INFORMATION
  Report Type: Spontaneous
  Country: US (occurrence: US)
  Receive Date: 20170525
  Receipt Date: 20170525
  Transmission Date: 20170830
  Serious: Yes (Other)
  Sender: FDA-Public Use
  Company Number: US-CLINIGEN GROUP PLC/ CLINIGEN HEALTHCARE LTD-E2B_00005290

PATIENT
  Age: 42 Year
  Sex: Male
  Weight: 55 kg

DRUGS (7)
  1. FOSCAVIR [Suspect]
     Active Substance: FOSCARNET SODIUM
     Dosage: DOSE: 110 MG/KG TOTAL DAILY DOSE: 110 MG/KG
     Route: 042
     Dates: start: 19940209
  2. RIFABUTIN. [Concomitant]
     Active Substance: RIFABUTIN
     Dosage: DOSE: 300 MG TOTAL DAILY DOSE: 300 MG
     Route: 048
  3. ZALCITABINE [Concomitant]
     Active Substance: ZALCITABINE
     Dosage: DOSE: 0.75 MG TOTAL DAILY DOSE: 2.25 MG
     Route: 048
  4. FOSCAVIR [Suspect]
     Active Substance: FOSCARNET SODIUM
     Indication: CYTOMEGALOVIRUS CHORIORETINITIS
     Dosage: DOSE: 65 MG/KG TOTAL DAILY DOSE: 195 MG/KG
     Route: 042
     Dates: start: 19940119, end: 19940208
  5. AMPHOTERICIN B. [Concomitant]
     Active Substance: AMPHOTERICIN B
     Indication: CANDIDA INFECTION
     Dosage: DOSE: 25 MG TOTAL DAILY DOSE: 25 MG
     Route: 042
     Dates: start: 19940210, end: 19940213
  6. NORMAL SALINE [Concomitant]
     Active Substance: SODIUM CHLORIDE
     Indication: DEHYDRATION
     Dosage: DOSE: 1  TOTAL DAILY DOSE: 1
     Route: 042
     Dates: start: 19940119
  7. SULFAMETHOXAZOLE W/TRIMETHOPRIM [Concomitant]
     Active Substance: SULFAMETHOXAZOLE\TRIMETHOPRIM
     Route: 048

REACTIONS (1)
  - Renal impairment [Recovering/Resolving]

NARRATIVE: CASE EVENT DATE: 19940211
